FAERS Safety Report 8164574-X (Version None)
Quarter: 2012Q1

REPORT INFORMATION
  Report Type: 
  Country: None (occurrence: None)
  Receive Date: 20120226
  Receipt Date: 20120215
  Transmission Date: 20120608
  Serious: Yes (Hospitalization)
  Sender: FDA-Public Use
  Company Number: FR-BRISTOL-MYERS SQUIBB COMPANY-16404873

PATIENT
  Age: 92 Year
  Sex: Female

DRUGS (3)
  1. CANDESARTAN CILEXETIL AND HYDROCHLOROTHIAZIDE [Concomitant]
  2. ESIDRIX [Concomitant]
  3. COUMADIN [Suspect]
     Indication: THROMBOSIS PROPHYLAXIS
     Route: 048

REACTIONS (3)
  - HYPERTENSION [None]
  - OVERDOSE [None]
  - INTERNATIONAL NORMALISED RATIO INCREASED [None]
